FAERS Safety Report 15051743 (Version 1)
Quarter: 2018Q2

REPORT INFORMATION
  Report Type: Spontaneous
  Country: US (occurrence: US)
  Receive Date: 20180622
  Receipt Date: 20180622
  Transmission Date: 20180711
  Serious: No
  Sender: FDA-Public Use
  Company Number: US-BEH-2018091937

PATIENT
  Age: 35 Year
  Sex: Female
  Weight: 90.7 kg

DRUGS (23)
  1. HIZENTRA [Suspect]
     Active Substance: HUMAN IMMUNOGLOBULIN G
     Indication: IMMUNODEFICIENCY COMMON VARIABLE
     Dosage: 30 G, QOW
     Route: 058
     Dates: start: 20160602
  2. EPINEPHRINE. [Concomitant]
     Active Substance: EPINEPHRINE
  3. ACYCLOVIR                          /00587301/ [Concomitant]
     Active Substance: ACYCLOVIR
  4. PROAIR HFA [Concomitant]
     Active Substance: ALBUTEROL SULFATE
  5. HIZENTRA [Suspect]
     Active Substance: HUMAN IMMUNOGLOBULIN G
     Dosage: 30 G, TOT
     Route: 058
     Dates: start: 20180617, end: 20180617
  6. DIPHENHYDRAMINE. [Concomitant]
     Active Substance: DIPHENHYDRAMINE
  7. DOXYCYCLINE. [Concomitant]
     Active Substance: DOXYCYCLINE
  8. VALTREX [Concomitant]
     Active Substance: VALACYCLOVIR HYDROCHLORIDE
  9. SULFAMETHOXAZOLE AND TRIMETHOPRIM [Concomitant]
     Active Substance: SULFAMETHOXAZOLE\TRIMETHOPRIM
  10. CALCIUM CARBONATE/VITAMIN D3 [Concomitant]
     Active Substance: CALCIUM CARBONATE\CHOLECALCIFEROL
  11. PROMETHAZINE [Concomitant]
     Active Substance: PROMETHAZINE\PROMETHAZINE HYDROCHLORIDE
  12. ACIDOPHILUS [Concomitant]
     Active Substance: LACTOBACILLUS ACIDOPHILUS
  13. XOPENEX [Concomitant]
     Active Substance: LEVALBUTEROL HYDROCHLORIDE
  14. ACETAMINOPHEN. [Concomitant]
     Active Substance: ACETAMINOPHEN
  15. IMODIUM A-D [Concomitant]
     Active Substance: LOPERAMIDE HYDROCHLORIDE
  16. CARAFATE [Concomitant]
     Active Substance: SUCRALFATE
  17. MONTELUKAST [Concomitant]
     Active Substance: MONTELUKAST SODIUM
  18. OMEPRAZOLE. [Concomitant]
     Active Substance: OMEPRAZOLE
  19. LYRICA [Concomitant]
     Active Substance: PREGABALIN
  20. TESTOSTERONE. [Concomitant]
     Active Substance: TESTOSTERONE
  21. ALUMINUM HYDROXIDE. [Concomitant]
     Active Substance: ALUMINUM HYDROXIDE
  22. ATORVASTATIN [Concomitant]
     Active Substance: ATORVASTATIN
  23. SPIRONOLACTONE. [Concomitant]
     Active Substance: SPIRONOLACTONE

REACTIONS (3)
  - Chest discomfort [Recovering/Resolving]
  - Dizziness [Recovering/Resolving]
  - Dyspnoea [Recovering/Resolving]

NARRATIVE: CASE EVENT DATE: 20180617
